FAERS Safety Report 8092650-9 (Version None)
Quarter: 2012Q1

REPORT INFORMATION
  Report Type: 
  Country: None (occurrence: None)
  Receive Date: 20120131
  Receipt Date: 20120125
  Transmission Date: 20120608
  Serious: Yes (Hospitalization)
  Sender: FDA-Public Use
  Company Number: US-AMGEN-USACT2012005482

PATIENT
  Age: 53 Year
  Sex: Male
  Weight: 92.245 kg

DRUGS (21)
  1. GEMCITABINE [Concomitant]
     Indication: BILE DUCT CANCER
     Dosage: 1000 MG/M2, UNK
     Dates: start: 20111117, end: 20120112
  2. LISINOPRIL [Concomitant]
     Dosage: UNK
     Dates: start: 20111117
  3. ACTOS [Concomitant]
     Dosage: UNK
     Dates: start: 20111117
  4. ASPIRIN [Concomitant]
     Dosage: UNK
     Dates: start: 20111117
  5. DECADRON [Concomitant]
     Dosage: UNK
     Dates: start: 20111229
  6. EMEND [Concomitant]
     Dosage: UNK
     Dates: start: 20120112
  7. PANITUMUMAB [Suspect]
     Indication: BILE DUCT CANCER
     Dosage: 6 MG/KG, Q2WK
     Route: 042
     Dates: start: 20111201, end: 20120112
  8. OMEPRAZOLE [Concomitant]
     Dosage: UNK
     Dates: start: 20111028
  9. METFORMIN HCL [Concomitant]
     Dosage: UNK
     Dates: start: 20111117
  10. ONDANSETRON HCL [Concomitant]
  11. BACLOFEN [Concomitant]
     Dosage: UNK
     Dates: start: 20111206
  12. MINOCYCLINE HCL [Concomitant]
     Dosage: UNK
     Dates: start: 20111215
  13. OXYCODONE HCL [Concomitant]
     Dosage: UNK
     Dates: start: 20111114
  14. PAROXETINE [Concomitant]
     Dosage: UNK
     Dates: start: 20111117
  15. POTASSIUM CHLORIDE [Concomitant]
     Dosage: UNK
     Dates: start: 20110112
  16. OXALIPLATIN [Concomitant]
     Indication: BILE DUCT CANCER
     Dosage: 85 MG/M2, Q2WK
     Route: 042
     Dates: start: 20121117
  17. CRESTOR [Concomitant]
     Dosage: UNK
     Dates: start: 20111117
  18. AMLODIPINE [Concomitant]
     Dosage: UNK
     Dates: start: 20111117
  19. COMPAZINE [Concomitant]
     Dosage: UNK
     Dates: start: 20111103
  20. LORAZEPAM [Concomitant]
     Dosage: UNK
     Dates: start: 20111028
  21. METOCLOPRAMIDE HCL [Concomitant]
     Dosage: UNK
     Dates: start: 20110119

REACTIONS (1)
  - FAILURE TO THRIVE [None]
